FAERS Safety Report 4349199-6 (Version None)
Quarter: 2004Q2

REPORT INFORMATION
  Report Type: 
  Country: None (occurrence: None)
  Receive Date: 20040427
  Receipt Date: 20031125
  Transmission Date: 20050107
  Serious: Yes (Life-Threatening)
  Sender: FDA-Public Use
  Company Number: 000707

PATIENT
  Age: 69 Year
  Sex: Female
  Weight: 54 kg

DRUGS (6)
  1. ZEVALIN [Suspect]
     Indication: NON-HODGKIN'S LYMPHOMA
     Dosage: 250 MG/M2, RITUXAN DOSE 1, INTRAVENOUS; SEE IMAGE
     Route: 042
     Dates: start: 20030925, end: 20030925
  2. ZEVALIN [Suspect]
     Indication: NON-HODGKIN'S LYMPHOMA
     Dosage: 250 MG/M2, RITUXAN DOSE 1, INTRAVENOUS; SEE IMAGE
     Route: 042
     Dates: start: 20030925, end: 20030925
  3. ZEVALIN [Suspect]
     Indication: NON-HODGKIN'S LYMPHOMA
     Dosage: 250 MG/M2, RITUXAN DOSE 1, INTRAVENOUS; SEE IMAGE
     Route: 042
     Dates: start: 20031002, end: 20031002
  4. ZEVALIN [Suspect]
     Indication: NON-HODGKIN'S LYMPHOMA
     Dosage: 250 MG/M2, RITUXAN DOSE 1, INTRAVENOUS; SEE IMAGE
     Route: 042
     Dates: start: 20031002, end: 20031002
  5. ALPRAZOLAM [Concomitant]
  6. DIAZEPAM [Concomitant]

REACTIONS (1)
  - NEUTROPENIA [None]
